FAERS Safety Report 17263341 (Version 1)
Quarter: 2020Q1

REPORT INFORMATION
  Report Type: Spontaneous
  Country: US (occurrence: US)
  Receive Date: 20200113
  Receipt Date: 20200113
  Transmission Date: 20200409
  Serious: No
  Sender: FDA-Public Use
  Company Number: US-SIGMAPHARM LABORATORIES, LLC-2019SIG00083

PATIENT
  Sex: Female

DRUGS (3)
  1. SYNTHROID [Concomitant]
     Active Substance: LEVOTHYROXINE SODIUM
     Dosage: 50 ?G, 1X/DAY IN THE MORNING
  2. LIOTHYRONINE SODIUM. [Suspect]
     Active Substance: LIOTHYRONINE SODIUM
     Dosage: 5 ?G, 1X/DAY IN THE MORNING
  3. LIOTHYRONINE SODIUM. [Suspect]
     Active Substance: LIOTHYRONINE SODIUM
     Dosage: 10 ?G, 1X/DAY AT 4 PM

REACTIONS (3)
  - Palpitations [Not Recovered/Not Resolved]
  - Heart rate increased [Unknown]
  - Middle insomnia [Recovered/Resolved]

NARRATIVE: CASE EVENT DATE: 2019
